FAERS Safety Report 9391514 (Version 1)
Quarter: 2013Q3

REPORT INFORMATION
  Report Type: Spontaneous
  Country: US (occurrence: None)
  Receive Date: 20130705
  Receipt Date: 20130705
  Transmission Date: 20140515
  Serious: Yes (Other)
  Sender: FDA-Public Use
  Company Number: 2013P1010846

PATIENT
  Sex: 0

DRUGS (2)
  1. PROMETHAZINE [Suspect]
  2. UNSPECIFIED BENZODIAZEPINES [Concomitant]

REACTIONS (1)
  - Intentional drug misuse [None]
